FAERS Safety Report 26055810 (Version 2)
Quarter: 2025Q4

REPORT INFORMATION
  Report Type: Spontaneous
  Country: US (occurrence: US)
  Receive Date: 20251117
  Receipt Date: 20251123
  Transmission Date: 20260118
  Serious: No
  Sender: SANDOZ
  Company Number: US-SANDOZ-SDZ2025US082588

PATIENT
  Age: 45 Year
  Sex: Female
  Weight: 88.43 kg

DRUGS (2)
  1. COMBIPATCH [Suspect]
     Active Substance: ESTRADIOL\NORETHINDRONE ACETATE
     Indication: Menopausal symptoms
     Dosage: 0.05/0.14 MG, ON MONDAY AND FRIDAY
     Route: 062
     Dates: start: 202510
  2. COMBIPATCH [Suspect]
     Active Substance: ESTRADIOL\NORETHINDRONE ACETATE
     Indication: Endometriosis
     Dosage: 0.05/0.14 MG, ON MONDAY AND FRIDAY (CURRENT BOX)
     Route: 062
     Dates: start: 2025

REACTIONS (6)
  - Product residue present [Not Recovered/Not Resolved]
  - Accidental exposure to product [Recovered/Resolved]
  - Product storage error [Recovered/Resolved]
  - Product administered at inappropriate site [Not Recovered/Not Resolved]
  - Device use error [Recovered/Resolved]
  - Off label use [Not Recovered/Not Resolved]

NARRATIVE: CASE EVENT DATE: 20251001
